FAERS Safety Report 5836707-9 (Version None)
Quarter: 2008Q3

REPORT INFORMATION
  Report Type: 
  Country: None (occurrence: None)
  Receive Date: 20080807
  Receipt Date: 20080731
  Transmission Date: 20090109
  Serious: Yes (Other)
  Sender: FDA-Public Use
  Company Number: US-KINGPHARMUSA00001-K200800899

PATIENT

DRUGS (4)
  1. EPIPEN [Suspect]
     Indication: ALLERGY TO STING
     Dosage: .3 MG, SINGLE
     Dates: start: 20080730, end: 20080730
  2. PAROXETINE HCL [Concomitant]
  3. LORAZEPAM [Concomitant]
  4. ACETAMINOPHEN [Concomitant]
     Dosage: UNK, PRN

REACTIONS (8)
  - ACCIDENTAL EXPOSURE [None]
  - HYPOAESTHESIA [None]
  - INJECTION SITE HAEMATOMA [None]
  - INJECTION SITE HAEMORRHAGE [None]
  - INJECTION SITE OEDEMA [None]
  - INJECTION SITE PAIN [None]
  - SKELETAL INJURY [None]
  - VASOCONSTRICTION [None]
